FAERS Safety Report 9364144 (Version 1)
Quarter: 2013Q2

REPORT INFORMATION
  Report Type: Spontaneous
  Country: FR (occurrence: FR)
  Receive Date: 20130624
  Receipt Date: 20130624
  Transmission Date: 20140414
  Serious: Yes (Death, Hospitalization)
  Sender: FDA-Public Use
  Company Number: FR-TEVA-414359ISR

PATIENT
  Sex: Male

DRUGS (2)
  1. FUROSEMIDE TEVA 40MG [Suspect]
     Dosage: 40 MILLIGRAM DAILY;
  2. ZOPICLONE [Concomitant]
     Dosage: .5 DOSAGE FORMS DAILY;

REACTIONS (3)
  - Death [Fatal]
  - Malaise [Unknown]
  - Swelling [Unknown]
